FAERS Safety Report 8889187 (Version 1)
Quarter: 2012Q4

REPORT INFORMATION
  Report Type: 
  Country: CA (occurrence: CA)
  Receive Date: 20121106
  Receipt Date: 20121106
  Transmission Date: 20130627
  Serious: Yes (Other)
  Sender: FDA-Public Use
  Company Number: CA-UCBSA-070147

PATIENT
  Sex: Female

DRUGS (5)
  1. VIMPAT [Suspect]
     Dates: start: 2011
  2. VIMPAT [Suspect]
     Dosage: TITRATION
  3. VIMPAT [Suspect]
     Dosage: MAX DOSE OF 400 MG
  4. TEGRETOL [Concomitant]
  5. EPIVAL [Concomitant]

REACTIONS (4)
  - Altered state of consciousness [Unknown]
  - Dizziness [Unknown]
  - Drop attacks [Unknown]
  - Fall [Unknown]
